FAERS Safety Report 7880722-0 (Version None)
Quarter: 2011Q4

REPORT INFORMATION
  Report Type: 
  Country: None (occurrence: None)
  Receive Date: 20111101
  Receipt Date: 20111031
  Transmission Date: 20120403
  Serious: Yes (Life-Threatening)
  Sender: FDA-Public Use
  Company Number: JP-BAYER-2011-105486

PATIENT
  Age: 72 Year
  Sex: Male

DRUGS (7)
  1. AMOXICILLIN [Concomitant]
     Dosage: DAILY DOSE 1.5 G
     Route: 048
     Dates: start: 20110408, end: 20110411
  2. MEROPENEM [Concomitant]
     Dosage: DAILY DOSE 2 G
     Route: 042
     Dates: start: 20110418, end: 20110507
  3. CIPROFLOXACIN [Suspect]
     Dosage: 600 MG, QD, PERIPHERAL VEIN
     Route: 041
     Dates: start: 20110502, end: 20110509
  4. SULFAMETHOXAZOLE [Concomitant]
     Dosage: DAILY DOSE 3 DF
     Route: 048
     Dates: start: 20110421, end: 20110502
  5. AMPICILLIN SODIUM [Concomitant]
     Dosage: DAILY DOSE 6 G
     Route: 042
     Dates: start: 20110411, end: 20110418
  6. FUNGUARD [Concomitant]
     Dosage: DAILY DOSE 150 MG
     Route: 042
     Dates: start: 20110430, end: 20110511
  7. CIPROFLOXACIN [Suspect]
     Indication: PNEUMONIA
     Dosage: 600 MG, QD, PERIPHERAL VEIN
     Route: 041
     Dates: start: 20110418, end: 20110502

REACTIONS (1)
  - RENAL FAILURE ACUTE [None]
